FAERS Safety Report 10866308 (Version 1)
Quarter: 2015Q1

REPORT INFORMATION
  Report Type: Spontaneous
  Country: US (occurrence: None)
  Receive Date: 20150219
  Receipt Date: 20150219
  Transmission Date: 20150721
  Serious: Yes (Other)
  Sender: FDA-Public Use
  Company Number: None

PATIENT
  Age: 55 Year
  Sex: Female
  Weight: 82.56 kg

DRUGS (4)
  1. FENTANYL. [Suspect]
     Active Substance: FENTANYL
     Indication: INTERVERTEBRAL DISC COMPRESSION
     Dosage: 1 PATCH EVERY 3 DAYS APPLIED AS MEDICATED PATCH TO SKIN
     Dates: start: 20150209, end: 20150217
  2. FENTANYL. [Suspect]
     Active Substance: FENTANYL
     Indication: PAIN IN EXTREMITY
     Dosage: 1 PATCH EVERY 3 DAYS APPLIED AS MEDICATED PATCH TO SKIN
     Dates: start: 20150209, end: 20150217
  3. FENTANYL. [Suspect]
     Active Substance: FENTANYL
     Indication: BACK PAIN
     Dosage: 1 PATCH EVERY 3 DAYS APPLIED AS MEDICATED PATCH TO SKIN
     Dates: start: 20150209, end: 20150217
  4. FENTANYL. [Suspect]
     Active Substance: FENTANYL
     Indication: INTERVERTEBRAL DISC PROTRUSION
     Dosage: 1 PATCH EVERY 3 DAYS APPLIED AS MEDICATED PATCH TO SKIN
     Dates: start: 20150209, end: 20150217

REACTIONS (2)
  - Product quality issue [None]
  - Product adhesion issue [None]

NARRATIVE: CASE EVENT DATE: 20150209
